FAERS Safety Report 21134025 (Version 1)
Quarter: 2022Q3

REPORT INFORMATION
  Report Type: Spontaneous
  Country: NL (occurrence: NL)
  Receive Date: 20220726
  Receipt Date: 20220726
  Transmission Date: 20221026
  Serious: Yes (Other)
  Sender: FDA-Public Use
  Company Number: None

PATIENT
  Sex: Female
  Weight: 57 kg

DRUGS (1)
  1. ISOTRETINOIN [Suspect]
     Active Substance: ISOTRETINOIN
     Indication: Acne
     Dosage: 40 MILLIGRAM, BID (2 X PER DAY 2 PIECES)
     Route: 065
     Dates: start: 20211129

REACTIONS (2)
  - Hypnagogic hallucination [Recovering/Resolving]
  - Abnormal dreams [Recovering/Resolving]
